FAERS Safety Report 10581762 (Version 1)
Quarter: 2014Q4

REPORT INFORMATION
  Report Type: Spontaneous
  Country: US (occurrence: US)
  Receive Date: 20141113
  Receipt Date: 20141113
  Transmission Date: 20150529
  Serious: Yes (Hospitalization, Other)
  Sender: FDA-Public Use
  Company Number: US-PAR PHARMACEUTICAL, INC-2014SCPR009485

PATIENT

DRUGS (2)
  1. DANTRIUM [Suspect]
     Active Substance: DANTROLENE SODIUM
     Indication: MUSCLE SPASTICITY
     Dosage: UNK UNK, UNKNOWN
     Route: 065
  2. BACLOFEN. [Concomitant]
     Active Substance: BACLOFEN
     Indication: MUSCLE SPASTICITY
     Dosage: UNK, UNKNOWN
     Route: 065

REACTIONS (4)
  - Weaning failure [Recovered/Resolved]
  - Pneumonia [Recovered/Resolved]
  - Respiratory failure [Recovered/Resolved]
  - Lung disorder [Recovered/Resolved]
